FAERS Safety Report 17764373 (Version 2)
Quarter: 2020Q2

REPORT INFORMATION
  Report Type: Spontaneous
  Country: US (occurrence: US)
  Receive Date: 20200511
  Receipt Date: 20200618
  Transmission Date: 20200714
  Serious: No
  Sender: FDA-Public Use
  Company Number: US-TEVA-2020-US-1233557

PATIENT
  Age: 67 Year
  Sex: Female

DRUGS (2)
  1. METOPROLOL. [Suspect]
     Active Substance: METOPROLOL
     Indication: PRODUCT USED FOR UNKNOWN INDICATION
     Route: 065
  2. MYRBETRIQ [Interacting]
     Active Substance: MIRABEGRON
     Indication: PRODUCT USED FOR UNKNOWN INDICATION
     Dosage: 50 MILLIGRAM DAILY;
     Route: 065
     Dates: start: 202002

REACTIONS (4)
  - Decreased appetite [Unknown]
  - Gastrointestinal motility disorder [Unknown]
  - Drug interaction [Unknown]
  - Therapeutic product effect incomplete [Unknown]
